FAERS Safety Report 23531301 (Version 1)
Quarter: 2024Q1

REPORT INFORMATION
  Report Type: Spontaneous
  Country: US (occurrence: US)
  Receive Date: 20240216
  Receipt Date: 20240216
  Transmission Date: 20240409
  Serious: Yes (Other)
  Sender: FDA-Public Use
  Company Number: US-PHARMAAND GMBH-2023PHR00171

PATIENT
  Sex: Female

DRUGS (3)
  1. RUCAPARIB [Suspect]
     Active Substance: RUCAPARIB
     Indication: Ovarian cancer
     Dosage: UNK
     Dates: end: 20211231
  2. RUCAPARIB [Suspect]
     Active Substance: RUCAPARIB
     Dosage: UNK
     Dates: start: 20220323, end: 202210
  3. LYNPARZA [Concomitant]
     Active Substance: OLAPARIB

REACTIONS (1)
  - Malignant neoplasm progression [Unknown]
